FAERS Safety Report 15068390 (Version 7)
Quarter: 2019Q1

REPORT INFORMATION
  Report Type: Report from Study
  Country: US (occurrence: US)
  Receive Date: 20180626
  Receipt Date: 20190109
  Transmission Date: 20190417
  Serious: Yes (Hospitalization)
  Sender: FDA-Public Use
  Company Number: US-TAKEDA-2018TUS020508

PATIENT
  Sex: Male

DRUGS (2)
  1. VEDOLIZUMAB [Suspect]
     Active Substance: VEDOLIZUMAB
     Indication: PRODUCT USED FOR UNKNOWN INDICATION
     Dosage: UNK
     Route: 042
     Dates: start: 20170307, end: 201806
  2. LIALDA [Concomitant]
     Active Substance: MESALAMINE
     Dosage: 4.8 MG, QD

REACTIONS (1)
  - Omental infarction [Recovered/Resolved with Sequelae]

NARRATIVE: CASE EVENT DATE: 20180416
